FAERS Safety Report 4801356-8 (Version None)
Quarter: 2005Q4

REPORT INFORMATION
  Report Type: 
  Country: None (occurrence: None)
  Receive Date: 20051012
  Receipt Date: 20050926
  Transmission Date: 20060501
  Serious: Yes (Other)
  Sender: FDA-Public Use
  Company Number: CA-2005-018831

PATIENT
  Age: 45 Year
  Sex: Female

DRUGS (4)
  1. BETASERON (INTERFERON BETA - 1B) INJECTION, 250UG [Suspect]
     Indication: RELAPSING-REMITTING MULTIPLE SCLEROSIS
     Dosage: 8 MIU, EVERY 2D, SUBCUTANEOUS
     Route: 058
     Dates: start: 20050806
  2. OXYCONTIN [Concomitant]
  3. NEURONTIN [Concomitant]
  4. EFFEXOR /CAN/ (VENLAFAXINE HYDROCHLORIDE) [Concomitant]

REACTIONS (7)
  - BRAIN OEDEMA [None]
  - HEADACHE [None]
  - INSOMNIA [None]
  - NAUSEA [None]
  - OPTIC NEURITIS [None]
  - TRIGEMINAL NEURALGIA [None]
  - VISION BLURRED [None]
